FAERS Safety Report 17529360 (Version 8)
Quarter: 2023Q4

REPORT INFORMATION
  Report Type: Spontaneous
  Country: ES (occurrence: ES)
  Receive Date: 20200311
  Receipt Date: 20231201
  Transmission Date: 20240109
  Serious: Yes (Life-Threatening, Hospitalization, Other)
  Sender: FDA-Public Use
  Company Number: ES-AUROBINDO-AUR-APL-2020-007042

PATIENT
  Age: 53 Year
  Sex: Female
  Weight: 67 kg

DRUGS (23)
  1. LOPINAVIR\RITONAVIR [Suspect]
     Active Substance: LOPINAVIR\RITONAVIR
     Indication: HIV infection
     Dosage: 400/100 MG, BID (TWICE DAILY)
     Route: 065
     Dates: start: 201801
  2. LOPINAVIR\RITONAVIR [Suspect]
     Active Substance: LOPINAVIR\RITONAVIR
     Indication: Antiretroviral therapy
     Dosage: UNK
     Route: 065
  3. TADALAFIL [Suspect]
     Active Substance: TADALAFIL
     Indication: Pulmonary arterial hypertension
     Dosage: 20 MILLIGRAM, QD
     Route: 065
     Dates: start: 201801, end: 2018
  4. TADALAFIL [Suspect]
     Active Substance: TADALAFIL
     Dosage: 20 MILLIGRAM, QD (RE-INTRODUCED)
     Route: 065
     Dates: start: 201804
  5. TRACLEER [Interacting]
     Active Substance: BOSENTAN
     Indication: Pulmonary arterial hypertension
     Dosage: 125 MILLIGRAM, BID
     Route: 065
     Dates: start: 201801, end: 2018
  6. TRACLEER [Interacting]
     Active Substance: BOSENTAN
     Indication: Antiretroviral therapy
     Dosage: 125 MILLIGRAM, BID (RE-INTRODUCED)
     Route: 065
     Dates: start: 20180409, end: 201809
  7. TRACLEER [Interacting]
     Active Substance: BOSENTAN
     Dosage: 62.5 MILLIGRAM, BID
     Route: 048
     Dates: start: 20180409, end: 20181019
  8. COBICISTAT\DARUNAVIR ETHANOLATE [Interacting]
     Active Substance: COBICISTAT\DARUNAVIR ETHANOLATE
     Indication: HIV infection
     Dosage: 950 MG, QD (800/150 MGCOBICISTAT/DARUNAVIR 150/800MG [DARUNAVIR/COBICISTAT] ONCE DAILY)
     Route: 065
     Dates: start: 201804, end: 201809
  9. COBICISTAT\DARUNAVIR ETHANOLATE [Interacting]
     Active Substance: COBICISTAT\DARUNAVIR ETHANOLATE
     Indication: Hepatitis C
     Dosage: UNK (800/150 MG, QD)
     Route: 065
     Dates: start: 20180501, end: 20181004
  10. COBICISTAT\DARUNAVIR ETHANOLATE [Interacting]
     Active Substance: COBICISTAT\DARUNAVIR ETHANOLATE
     Indication: Antiretroviral therapy
  11. RALTEGRAVIR [Interacting]
     Active Substance: RALTEGRAVIR
     Indication: HIV infection
     Dosage: 800 MILLIGRAM, QD (400 MILLIGRAM, BID)
     Route: 065
     Dates: start: 20180122, end: 20181004
  12. RALTEGRAVIR [Interacting]
     Active Substance: RALTEGRAVIR
     Indication: Hepatitis C
     Dosage: UNK
     Route: 065
     Dates: start: 201801
  13. RALTEGRAVIR [Interacting]
     Active Substance: RALTEGRAVIR
     Indication: Antiretroviral therapy
     Dosage: 400 MILLIGRAM, BID
     Route: 065
  14. RALTEGRAVIR [Interacting]
     Active Substance: RALTEGRAVIR
     Dosage: 800 MILLIGRAM, QD
     Route: 065
  15. RALTEGRAVIR [Interacting]
     Active Substance: RALTEGRAVIR
     Dosage: 400 MILLIGRAM, QD
     Route: 065
     Dates: start: 201801
  16. GLECAPREVIR\PIBRENTASVIR [Suspect]
     Active Substance: GLECAPREVIR\PIBRENTASVIR
     Indication: Hepatitis C
     Dosage: 8 WEEK
     Route: 065
     Dates: start: 201801, end: 2018
  17. RILPIVIRINE [Suspect]
     Active Substance: RILPIVIRINE
     Indication: HIV infection
     Dosage: 25 MILLIGRAM, QD
     Route: 065
     Dates: start: 201801, end: 201804
  18. RILPIVIRINE [Suspect]
     Active Substance: RILPIVIRINE
     Indication: Antiretroviral therapy
  19. COBICISTAT\DARUNAVIR ETHANOLATE [Suspect]
     Active Substance: COBICISTAT\DARUNAVIR ETHANOLATE
     Indication: HIV infection
     Dosage: UNK
     Route: 048
     Dates: start: 20180501, end: 20181004
  20. RITONAVIR [Concomitant]
     Active Substance: RITONAVIR
     Dosage: UNK
     Route: 065
  21. ISENTRESS [Concomitant]
     Active Substance: RALTEGRAVIR POTASSIUM
     Indication: HIV infection
     Dosage: UNK
     Route: 048
     Dates: start: 20180122, end: 20181004
  22. LOPINAVIR\RITONAVIR [Concomitant]
     Active Substance: LOPINAVIR\RITONAVIR
     Indication: Hepatitis C
     Dosage: UNK UNK, BID
     Route: 065
  23. BOSENTAN [Concomitant]
     Active Substance: BOSENTAN
     Indication: Pulmonary arterial hypertension
     Dosage: 125 MILLIGRAM, BID (TWO TIMES A DAY)
     Route: 048
     Dates: start: 201801

REACTIONS (10)
  - Gene mutation [Recovered/Resolved]
  - Respiratory failure [Recovering/Resolving]
  - Cardiac failure congestive [Recovering/Resolving]
  - Toxicity to various agents [Recovering/Resolving]
  - Virologic failure [Recovering/Resolving]
  - Cardiac failure [Recovering/Resolving]
  - Fluid retention [Recovering/Resolving]
  - Blood HIV RNA increased [Recovering/Resolving]
  - Drug resistance [Recovering/Resolving]
  - Drug interaction [Recovering/Resolving]

NARRATIVE: CASE EVENT DATE: 20180101
